FAERS Safety Report 16975538 (Version 1)
Quarter: 2019Q4

REPORT INFORMATION
  Report Type: Spontaneous
  Country: US (occurrence: US)
  Receive Date: 20191030
  Receipt Date: 20191030
  Transmission Date: 20200122
  Serious: Yes (Other)
  Sender: FDA-Public Use
  Company Number: US-GILEAD-2019-0434799

PATIENT
  Sex: Male

DRUGS (3)
  1. TRUVADA [Suspect]
     Active Substance: EMTRICITABINE\TENOFOVIR DISOPROXIL FUMARATE
     Indication: HIV INFECTION
     Dosage: UNK
     Route: 048
     Dates: start: 2010, end: 2013
  2. STRIBILD [Suspect]
     Active Substance: COBICISTAT\ELVITEGRAVIR\EMTRICITABINE\TENOFOVIR DISOPROXIL FUMARATE
     Indication: HIV INFECTION
     Dosage: UNK
     Route: 048
     Dates: start: 2015
  3. ATRIPLA [Suspect]
     Active Substance: EFAVIRENZ\EMTRICITABINE\TENOFOVIR DISOPROXIL FUMARATE
     Indication: HIV INFECTION
     Dosage: UNK
     Route: 048
     Dates: start: 2015

REACTIONS (12)
  - Chronic kidney disease [Unknown]
  - Economic problem [Not Recovered/Not Resolved]
  - Anxiety [Not Recovered/Not Resolved]
  - Spinal fracture [Unknown]
  - Renal failure [Unknown]
  - Vitamin D decreased [Unknown]
  - Anhedonia [Not Recovered/Not Resolved]
  - Spinal osteoarthritis [Unknown]
  - Emotional distress [Not Recovered/Not Resolved]
  - Back pain [Unknown]
  - Tooth disorder [Unknown]
  - Pain [Not Recovered/Not Resolved]
